FAERS Safety Report 4471472-1 (Version None)
Quarter: 2004Q4

REPORT INFORMATION
  Report Type: 
  Country: None (occurrence: None)
  Receive Date: 20041007
  Receipt Date: 20041007
  Transmission Date: 20050328
  Serious: No
  Sender: FDA-Public Use
  Company Number: None

PATIENT
  Sex: Male
  Weight: 77.1115 kg

DRUGS (1)
  1. TAXOL [Suspect]
     Dosage: OVER THE WIRE PACLITAXEL ELUTING CORONARY STENT SYSTEM
     Route: 022
     Dates: start: 20040526

REACTIONS (3)
  - CHEST PAIN [None]
  - DEVICE FAILURE [None]
  - PROCEDURAL COMPLICATION [None]
